FAERS Safety Report 8178426-2 (Version None)
Quarter: 2012Q1

REPORT INFORMATION
  Report Type: 
  Country: None (occurrence: None)
  Receive Date: 20120301
  Receipt Date: 20120227
  Transmission Date: 20120608
  Serious: No
  Sender: FDA-Public Use
  Company Number: US-PFIZER INC-2012052638

PATIENT
  Sex: Female
  Weight: 117 kg

DRUGS (4)
  1. POTASSIUM [Concomitant]
     Indication: MUSCLE SPASMS
     Dosage: 10 MEQ, DAILY
  2. ZOLOFT [Suspect]
     Indication: DEPRESSION
     Dosage: 100 MG, DAILY
  3. ZOLOFT [Suspect]
     Indication: ANXIETY
  4. PROVIGIL [Concomitant]
     Indication: DISTURBANCE IN ATTENTION
     Dosage: 100 MG, DAILY

REACTIONS (2)
  - ADENOMA BENIGN [None]
  - THYROID DISORDER [None]
